FAERS Safety Report 5332189-4 (Version None)
Quarter: 2007Q1

REPORT INFORMATION
  Report Type: 
  Country: None (occurrence: None)
  Receive Date: 20070306
  Receipt Date: 20060203
  Transmission Date: 20070707
  Serious: Yes (Hospitalization)
  Sender: FDA-Public Use
  Company Number: A03200600684

PATIENT
  Age: 83 Year
  Sex: Male

DRUGS (2)
  1. PLAVIX [Suspect]
     Indication: CARDIAC DISORDER
     Dosage: ORAL
     Route: 048
     Dates: end: 20040701
  2. ASPIRIN [Suspect]
     Indication: CARDIAC DISORDER
     Dosage: ORAL
     Route: 048
     Dates: end: 20040701

REACTIONS (3)
  - APHASIA [None]
  - HEADACHE [None]
  - SUBDURAL HAEMATOMA [None]
